FAERS Safety Report 11700488 (Version 1)
Quarter: 2015Q4

REPORT INFORMATION
  Report Type: Spontaneous
  Country: US (occurrence: None)
  Receive Date: 20151104
  Receipt Date: 20151104
  Transmission Date: 20160304
  Serious: No
  Sender: FDA-Public Use
  Company Number: None

PATIENT
  Age: 50 Year
  Sex: Male
  Weight: 83.92 kg

DRUGS (1)
  1. VENLAFAXINE HCL [Suspect]
     Active Substance: VENLAFAXINE HYDROCHLORIDE
     Indication: DEPRESSION
     Dosage: 1 PILL 10-15 YEARS
     Route: 048

REACTIONS (6)
  - Drug withdrawal syndrome [None]
  - Drug dependence [None]
  - Paraesthesia [None]
  - Vertigo [None]
  - Hyperhidrosis [None]
  - Pain [None]
